FAERS Safety Report 19067388 (Version 2)
Quarter: 2021Q2

REPORT INFORMATION
  Report Type: Report from Study
  Country: US (occurrence: US)
  Receive Date: 20210329
  Receipt Date: 20210614
  Transmission Date: 20210717
  Serious: No
  Sender: FDA-Public Use
  Company Number: US-TAKEDA-2021TUS017332

PATIENT
  Sex: Female
  Weight: 90.25 kg

DRUGS (19)
  1. FENOFIBRATE. [Concomitant]
     Active Substance: FENOFIBRATE
  2. CUVITRU [Suspect]
     Active Substance: HUMAN IMMUNOGLOBULIN G
     Indication: IMMUNODEFICIENCY
     Dosage: 20 MILLIGRAM, Q2WEEKS
     Route: 058
  3. KLONOPIN [Concomitant]
     Active Substance: CLONAZEPAM
  4. FLUTICASONE. [Concomitant]
     Active Substance: FLUTICASONE
  5. FAMOTIDINE. [Concomitant]
     Active Substance: FAMOTIDINE
  6. SYMBICORT [Concomitant]
     Active Substance: BUDESONIDE\FORMOTEROL FUMARATE DIHYDRATE
  7. VITAMIN C [Concomitant]
     Active Substance: ASCORBIC ACID
  8. SYNTHROID [Concomitant]
     Active Substance: LEVOTHYROXINE SODIUM
  9. NEXIUM I.V. [Concomitant]
     Active Substance: ESOMEPRAZOLE SODIUM
  10. WELLBUTRIN [Concomitant]
     Active Substance: BUPROPION HYDROCHLORIDE
  11. ROPINIROLE. [Concomitant]
     Active Substance: ROPINIROLE
  12. DIVALPROEX [Concomitant]
     Active Substance: DIVALPROEX SODIUM
  13. VITAMIN D3 [Concomitant]
     Active Substance: CHOLECALCIFEROL
  14. VITAMIN B COMPLEX [Concomitant]
     Active Substance: CYANOCOBALAMIN\DEXPANTHENOL\NIACINAMIDE\PYRIDOXINE HYDROCHLORIDE\RIBOFLAVIN 5^-PHOSPHATE SODIUM\THIAMINE HYDROCHLORIDE\VITAMIN B COMPLEX
  15. QUETIAPINE. [Concomitant]
     Active Substance: QUETIAPINE
  16. LATUDA [Concomitant]
     Active Substance: LURASIDONE HYDROCHLORIDE
  17. ZINC. [Concomitant]
     Active Substance: ZINC
  18. SINGULAIR [Concomitant]
     Active Substance: MONTELUKAST SODIUM
  19. ZYRTEC [Concomitant]
     Active Substance: CETIRIZINE HYDROCHLORIDE

REACTIONS (2)
  - Lipoma [Unknown]
  - Gout [Unknown]
